FAERS Safety Report 8966408 (Version 1)
Quarter: 2012Q4

REPORT INFORMATION
  Report Type: 
  Country: FR (occurrence: FR)
  Receive Date: 20121214
  Receipt Date: 20121214
  Transmission Date: 20130627
  Serious: Yes (Other)
  Sender: FDA-Public Use
  Company Number: FR-GLAXOSMITHKLINE-B0850255A

PATIENT
  Age: 51 Year
  Sex: Male

DRUGS (2)
  1. AVAMYS [Suspect]
     Indication: RHINITIS ALLERGIC
     Route: 065
     Dates: start: 201211
  2. ANTIBIOTIC [Concomitant]
     Indication: SUPERINFECTION
     Dates: start: 201210

REACTIONS (2)
  - Ocular hypertension [Recovering/Resolving]
  - Eye movement disorder [Recovering/Resolving]
